FAERS Safety Report 17332224 (Version 1)
Quarter: 2020Q1

REPORT INFORMATION
  Report Type: Spontaneous
  Country: US (occurrence: US)
  Receive Date: 20200112
  Receipt Date: 20200112
  Transmission Date: 20200409
  Serious: No
  Sender: FDA-Public Use
  Company Number: None

PATIENT
  Age: 34 Year
  Sex: Female

DRUGS (1)
  1. ENBREL [Suspect]
     Active Substance: ETANERCEPT
     Dosage: OTHER
     Route: 058
     Dates: start: 201910

REACTIONS (6)
  - Nasopharyngitis [None]
  - Nasal congestion [None]
  - Cough [None]
  - Malaise [None]
  - Pneumonia [None]
  - Oropharyngeal pain [None]

NARRATIVE: CASE EVENT DATE: 20200112
